FAERS Safety Report 14037654 (Version 2)
Quarter: 2018Q3

REPORT INFORMATION
  Report Type: Spontaneous
  Country: US (occurrence: US)
  Receive Date: 20171004
  Receipt Date: 20180803
  Transmission Date: 20181010
  Serious: No
  Sender: FDA-Public Use
  Company Number: US-PFIZER INC-2017424477

PATIENT
  Age: 62 Year
  Sex: Female

DRUGS (3)
  1. IBRANCE [Suspect]
     Active Substance: PALBOCICLIB
     Dosage: 75 MG, CYCLIC (DAILY WITH BREAKFAST FOR 21 DAYS AND THEN 7 DAYS OFF)
     Route: 048
     Dates: start: 201703
  2. FASLODEX [Suspect]
     Active Substance: FULVESTRANT
     Dosage: UNK
  3. IBRANCE [Suspect]
     Active Substance: PALBOCICLIB
     Indication: BREAST CANCER FEMALE
     Dosage: 100 MG, CYCLIC (EVERY DAY FOR 21 DAYS THEN REST 7 DAYS)
     Route: 048
     Dates: start: 201703

REACTIONS (4)
  - Alopecia [Unknown]
  - White blood cell count decreased [Unknown]
  - Fatigue [Unknown]
  - Bone pain [Unknown]
